FAERS Safety Report 8195125 (Version 4)
Quarter: 2012Q4

REPORT INFORMATION
  Report Type: Report from Study
  Country: ES (occurrence: ES)
  Receive Date: 20111024
  Receipt Date: 20121119
  Transmission Date: 20130627
  Serious: Yes (Hospitalization)
  Sender: FDA-Public Use
  Company Number: ES-AMGEN-ESPCT2011053733

PATIENT
  Age: 50 Year
  Sex: Female

DRUGS (10)
  1. 5-FU [Concomitant]
     Dosage: 1000 mg/m2, qmo
     Route: 042
     Dates: start: 20110829
  2. MITOMICINA C [Concomitant]
     Dosage: 10 mg/m2, qmo
     Route: 042
     Dates: start: 20110829
  3. FORTASEC [Concomitant]
  4. ATARAX [Concomitant]
  5. MARIHUANA [Concomitant]
  6. PEITEL [Concomitant]
     Dosage: 100 mg, UNK
  7. LODERM [Concomitant]
  8. IBUPROFEN [Concomitant]
     Dosage: UNK UNK, prn
  9. DECAPEPTYL [Concomitant]
     Indication: ENDOMETRIOSIS
     Dosage: UNK UNK, qmo
  10. PANITUMUMAB [Suspect]
     Indication: ANAL CANCER
     Dosage: 6 mg/m2, q2wk
     Route: 042
     Dates: start: 20110829

REACTIONS (1)
  - Febrile neutropenia [Recovered/Resolved]
